FAERS Safety Report 4359255-4 (Version None)
Quarter: 2004Q2

REPORT INFORMATION
  Report Type: 
  Country: None (occurrence: None)
  Receive Date: 20040512
  Receipt Date: 20040426
  Transmission Date: 20050107
  Serious: Yes (Other)
  Sender: FDA-Public Use
  Company Number: USA040465867

PATIENT
  Age: 62 Year
  Sex: Female

DRUGS (1)
  1. TAPAZOLE [Suspect]
     Indication: HYPERTHYROIDISM
     Dosage: 5 MG DAY
     Dates: start: 19980101

REACTIONS (6)
  - ACCIDENT [None]
  - ANXIETY [None]
  - FALL [None]
  - HEPATIC ENZYME INCREASED [None]
  - SOMNOLENCE [None]
  - TREATMENT NONCOMPLIANCE [None]
